APPROVED DRUG PRODUCT: NICARDIPINE HYDROCHLORIDE
Active Ingredient: NICARDIPINE HYDROCHLORIDE
Strength: 25MG/10ML (2.5MG/ML)
Dosage Form/Route: INJECTABLE;INJECTION
Application: N022276 | Product #001 | TE Code: AP
Applicant: HIKMA INTERNATIONAL PHARMACEUTICALS LLC
Approved: Jul 24, 2008 | RLD: Yes | RS: Yes | Type: RX